FAERS Safety Report 9903017 (Version 1)
Quarter: 2014Q1

REPORT INFORMATION
  Report Type: Spontaneous
  Country: PL (occurrence: PL)
  Receive Date: 20140217
  Receipt Date: 20140217
  Transmission Date: 20141002
  Serious: Yes (Hospitalization)
  Sender: FDA-Public Use
  Company Number: PHHY2014PL018769

PATIENT
  Age: 91 Year
  Sex: Female

DRUGS (3)
  1. EXELON PATCH [Suspect]
     Dosage: 4.6 MG/24 HOUR
     Route: 062
  2. EXELON PATCH [Suspect]
     Dosage: 9.5 MG/24 HOUR
     Route: 062
  3. EXELON PATCH [Suspect]
     Dosage: UNK
     Route: 062

REACTIONS (4)
  - Biliary dilatation [Recovered/Resolved]
  - Vomiting [Recovered/Resolved]
  - Diarrhoea [Recovered/Resolved]
  - General physical health deterioration [Unknown]
